FAERS Safety Report 6601792-3 (Version None)
Quarter: 2010Q1

REPORT INFORMATION
  Report Type: 
  Country: None (occurrence: None)
  Receive Date: 20100225
  Receipt Date: 20100216
  Transmission Date: 20100710
  Serious: Yes (Hospitalization)
  Sender: FDA-Public Use
  Company Number: GXKR2010GT01928

PATIENT
  Sex: Male

DRUGS (1)
  1. CURAM (NGX) [Suspect]
     Route: 065

REACTIONS (1)
  - PALPITATIONS [None]
